FAERS Safety Report 7867613 (Version 3)
Quarter: 2014Q2

REPORT INFORMATION
  Report Type: Spontaneous
  Country: US (occurrence: US)
  Receive Date: 20110323
  Receipt Date: 20131024
  Transmission Date: 20141212
  Serious: No
  Sender: FDA-Public Use
  Company Number: US-PFIZER INC-2011059480

PATIENT
  Age: 61 Year
  Sex: Female
  Weight: 72.56 kg

DRUGS (4)
  1. PREMPRO [Suspect]
     Indication: MENOPAUSAL DISORDER
     Dosage: 0.45/1.5 MG, DAILY
     Route: 048
  2. PREMPRO [Suspect]
     Indication: HOT FLUSH
  3. BENICAR [Concomitant]
     Indication: HYPERTENSION
     Dosage: 40 MG, 1X/DAY
     Route: 048
  4. SYNTHROID [Concomitant]
     Indication: THYROID DISORDER
     Dosage: 125 UG, DAILY

REACTIONS (2)
  - Pain in extremity [Not Recovered/Not Resolved]
  - Hot flush [Recovered/Resolved]
